FAERS Safety Report 19376529 (Version 2)
Quarter: 2023Q2

REPORT INFORMATION
  Report Type: Spontaneous
  Country: DE (occurrence: DE)
  Receive Date: 20210605
  Receipt Date: 20230611
  Transmission Date: 20230721
  Serious: Yes (Hospitalization, Other)
  Sender: FDA-Public Use
  Company Number: DE-ATNAHS LIMITED-ATNAHS20210501651

PATIENT
  Age: 72 Year
  Sex: Female
  Weight: 75 kg

DRUGS (15)
  1. PANTOPRAZOLE [Suspect]
     Active Substance: PANTOPRAZOLE
     Indication: Gastritis prophylaxis
     Dates: start: 2012
  2. EVEROLIMUS [Suspect]
     Active Substance: EVEROLIMUS
     Indication: Heart transplant
     Dates: start: 2006
  3. IBANDRONIC ACID [Suspect]
     Active Substance: IBANDRONIC ACID
     Indication: Osteoporosis
     Dates: start: 2012
  4. PRAVASTATIN [Suspect]
     Active Substance: PRAVASTATIN
     Indication: Hypercholesterolaemia
     Dates: start: 2012
  5. TORSEMIDE [Suspect]
     Active Substance: TORSEMIDE
     Indication: Cardiac failure
     Dates: start: 2012
  6. OPIUM [Suspect]
     Active Substance: OPIUM
     Indication: Diarrhoea
     Dosage: UNK
     Dates: start: 2019
  7. OPIUM [Suspect]
     Active Substance: OPIUM
     Indication: Diarrhoea
     Dates: start: 2000
  8. PREDNISOLONE [Suspect]
     Active Substance: PREDNISOLONE
     Indication: Rheumatic disorder
     Dates: start: 2006
  9. ERGOCALCIFEROL [Suspect]
     Active Substance: ERGOCALCIFEROL
     Indication: Osteoporosis
     Dates: start: 2012
  10. NORSPAN [Suspect]
     Active Substance: BUPRENORPHINE
     Indication: Rheumatic disorder
     Dates: start: 2019
  11. CYCLOSPORINE [Suspect]
     Active Substance: CYCLOSPORINE
     Indication: Heart transplant
     Dates: start: 2006
  12. BEROTEC [Suspect]
     Active Substance: FENOTEROL HYDROBROMIDE
     Indication: Product used for unknown indication
     Dates: start: 2000
  13. CALCIUM [Suspect]
     Active Substance: CALCIUM
     Indication: Osteoporosis
     Dates: start: 2012
  14. SYMBICORT [Suspect]
     Active Substance: BUDESONIDE\FORMOTEROL FUMARATE DIHYDRATE
     Indication: Asthma
     Dates: start: 2000
  15. TAFAMIDIS [Concomitant]
     Active Substance: TAFAMIDIS
     Indication: Amyloidosis
     Dosage: 20 MG, QD
     Dates: start: 201708

REACTIONS (17)
  - Chronic kidney disease [Unknown]
  - Congenital coronary artery malformation [Unknown]
  - Polyneuropathy [Unknown]
  - Hepatic cirrhosis [Unknown]
  - Cardiac failure [Recovered/Resolved]
  - Arterial thrombosis [Unknown]
  - Renal cyst [Unknown]
  - Polyneuropathy [Unknown]
  - Pancreatic steatosis [Unknown]
  - Sinus arrhythmia [Unknown]
  - Asthma [Unknown]
  - Arteriosclerosis [Unknown]
  - Pleural effusion [Unknown]
  - Dyspnoea [Unknown]
  - Urinary tract infection [Recovered/Resolved]
  - Pyrexia [Recovered/Resolved]
  - Dizziness [Unknown]

NARRATIVE: CASE EVENT DATE: 20100101
